FAERS Safety Report 8576990-2 (Version None)
Quarter: 2012Q3

REPORT INFORMATION
  Report Type: 
  Country: None (occurrence: None)
  Receive Date: 20120807
  Receipt Date: 20120727
  Transmission Date: 20120928
  Serious: Yes (Other)
  Sender: FDA-Public Use
  Company Number: US-BAYER-2012-076539

PATIENT
  Age: 37 Year
  Sex: Female

DRUGS (5)
  1. DROSPIRENONE AND ETHINYL ESTRADIOL [Suspect]
  2. NAPROXEN [Concomitant]
     Dosage: 500 MG, UNK
     Route: 048
     Dates: start: 20111012
  3. ALBUTEROL [Concomitant]
     Dosage: 90 MCG 2 PUFFS EVERY 6 HOURS, PRN
     Dates: start: 20111024
  4. SYNTHROID [Concomitant]
     Indication: HYPOTHYROIDISM
     Dosage: 0.1 MG, OM
     Route: 048
     Dates: start: 20110727
  5. YAZ [Suspect]

REACTIONS (2)
  - DEEP VEIN THROMBOSIS [None]
  - THROMBOPHLEBITIS SUPERFICIAL [None]
